FAERS Safety Report 26199203 (Version 1)
Quarter: 2025Q4

REPORT INFORMATION
  Report Type: Spontaneous
  Country: CN (occurrence: CN)
  Receive Date: 20251225
  Receipt Date: 20251225
  Transmission Date: 20260117
  Serious: Yes (Death, Hospitalization)
  Sender: BEIGENE
  Company Number: CN-BEONEMEDICINES-BGN-2025-023325

PATIENT
  Age: 77 Year
  Sex: Female

DRUGS (4)
  1. TISLELIZUMAB [Suspect]
     Active Substance: TISLELIZUMAB
     Indication: Lung neoplasm malignant
     Dosage: UNK
  2. TISLELIZUMAB [Suspect]
     Active Substance: TISLELIZUMAB
     Dosage: UNK
  3. VEBRELTINIB [Concomitant]
     Active Substance: VEBRELTINIB
     Indication: Lung neoplasm malignant
     Dosage: UNK
  4. VEBRELTINIB [Concomitant]
     Active Substance: VEBRELTINIB
     Dosage: UNK

REACTIONS (4)
  - Tumour lysis syndrome [Fatal]
  - Pneumonia [Unknown]
  - Pyrexia [Unknown]
  - White blood cell count decreased [Unknown]

NARRATIVE: CASE EVENT DATE: 20251202
